FAERS Safety Report 17484569 (Version 1)
Quarter: 2020Q1

REPORT INFORMATION
  Report Type: Spontaneous
  Country: US (occurrence: US)
  Receive Date: 20200302
  Receipt Date: 20200302
  Transmission Date: 20200409
  Serious: Yes (Hospitalization)
  Sender: FDA-Public Use
  Company Number: US-ASTRAZENECA-2020SE29126

PATIENT
  Sex: Female

DRUGS (9)
  1. ALBUTEROL. [Concomitant]
     Active Substance: ALBUTEROL
  2. DIAZEPAM. [Concomitant]
     Active Substance: DIAZEPAM
  3. GABAPENTIN. [Concomitant]
     Active Substance: GABAPENTIN
  4. PHENOBARB [Concomitant]
     Active Substance: PHENOBARBITAL SODIUM
  5. SYNAGIS [Suspect]
     Active Substance: PALIVIZUMAB
     Indication: NEONATAL RESPIRATORY DISTRESS SYNDROME
     Route: 030
     Dates: start: 20200110
  6. KEPPRA [Concomitant]
     Active Substance: LEVETIRACETAM
  7. GLYCERIN. [Concomitant]
     Active Substance: GLYCERIN
  8. LORAZEPAM. [Concomitant]
     Active Substance: LORAZEPAM
  9. SENEKOT [Concomitant]

REACTIONS (1)
  - Nasopharyngitis [Unknown]
